FAERS Safety Report 7907687-7 (Version None)
Quarter: 2011Q4

REPORT INFORMATION
  Report Type: 
  Country: None (occurrence: None)
  Receive Date: 20111110
  Receipt Date: 20111031
  Transmission Date: 20120403
  Serious: Yes (Other)
  Sender: FDA-Public Use
  Company Number: US-BAYER-201036035NA

PATIENT
  Age: 46 Year
  Sex: Female
  Weight: 83 kg

DRUGS (19)
  1. CLARITIN [Concomitant]
     Indication: NASAL CONGESTION
     Route: 048
  2. DROSPIRENONE AND ETHINYL ESTRADIOL [Suspect]
     Indication: CONTRACEPTION
     Dosage: UNK
     Dates: start: 20090401, end: 20090801
  3. LORATADINE [Concomitant]
     Dosage: 10 MG, QD
     Route: 048
  4. LISINOPRIL [Concomitant]
     Indication: HYPERTENSION
     Dosage: 10 MG, QD
     Route: 048
     Dates: start: 20090301, end: 20091001
  5. SODIUM CHLORIDE [Concomitant]
     Indication: NASAL CONGESTION
     Dosage: UNK UNK, PRN
     Route: 045
     Dates: start: 20090327, end: 20090806
  6. YAZ [Suspect]
     Indication: PREMENSTRUAL SYNDROME
  7. PAROXETINE HCL [Concomitant]
     Indication: DEPRESSION
     Dosage: 20 MG, QD
     Dates: start: 20090101, end: 20091001
  8. PAROXETINE HCL [Concomitant]
     Dosage: 20 MG, QD
     Route: 048
     Dates: start: 20100505, end: 20100501
  9. PAROXETINE HCL [Concomitant]
     Dosage: 20 MG, QD
     Route: 048
     Dates: start: 20100801
  10. DAILY MULTIVITAMIN [Concomitant]
     Dosage: UNK UNK, QD
     Route: 048
     Dates: start: 20060511, end: 20110228
  11. GLUCOSAMINE SULFATE W/CHONDROITIN [Concomitant]
     Dosage: UNK
     Route: 048
     Dates: start: 20081128, end: 20100218
  12. LOVAZA [Concomitant]
     Dosage: UNK UNK, QD
     Route: 048
     Dates: start: 20090327, end: 20090806
  13. YAZ [Suspect]
     Indication: CONTRACEPTION
     Dosage: UNK
     Dates: start: 20090101, end: 20090301
  14. DROSPIRENONE AND ETHINYL ESTRADIOL [Suspect]
     Indication: PREMENSTRUAL SYNDROME
  15. CALCIUM CARBONATE W/COLECALCIFEROL [Concomitant]
     Dosage: UNK
     Route: 048
  16. PAROXETINE HCL [Concomitant]
     Dosage: 20 MG, QD
     Route: 048
     Dates: start: 20091201, end: 20100301
  17. AFRIN [Concomitant]
     Indication: NASAL CONGESTION
     Dosage: UNK
     Route: 045
     Dates: start: 20090327
  18. ASPIRIN [Concomitant]
     Dosage: 325 MG, QD
     Dates: start: 20090327, end: 20090511
  19. OMEPRAZOLE [Concomitant]
     Indication: GASTROOESOPHAGEAL REFLUX DISEASE
     Dosage: 20 MG, QD
     Route: 048
     Dates: start: 20090417, end: 20090517

REACTIONS (10)
  - DEPRESSION [None]
  - DYSPEPSIA [None]
  - SCAR [None]
  - CONSTIPATION [None]
  - CHOLECYSTITIS CHRONIC [None]
  - ANXIETY [None]
  - ABDOMINAL DISTENSION [None]
  - DIARRHOEA [None]
  - CHOLECYSTECTOMY [None]
  - FLATULENCE [None]
